FAERS Safety Report 4309558-4 (Version None)
Quarter: 2004Q1

REPORT INFORMATION
  Report Type: 
  Country: None (occurrence: None)
  Receive Date: 20040301
  Receipt Date: 20040218
  Transmission Date: 20041129
  Serious: Yes (Death)
  Sender: FDA-Public Use
  Company Number: 2004200181US

PATIENT
  Age: 49 Year
  Sex: Male

DRUGS (3)
  1. LINEZOLID (LINEZOLID) SOLUTION, STERILE [Suspect]
     Indication: PNEUMONIA STAPHYLOCOCCAL
  2. RIFAMPICIN [Concomitant]
  3. VANCOMYCIN [Concomitant]

REACTIONS (1)
  - DRUG RESISTANCE [None]
